FAERS Safety Report 20460551 (Version 1)
Quarter: 2022Q1

REPORT INFORMATION
  Report Type: Spontaneous
  Country: US (occurrence: None)
  Receive Date: 20220210
  Receipt Date: 20220210
  Transmission Date: 20220424
  Serious: Yes (Other)
  Sender: FDA-Public Use
  Company Number: None

PATIENT
  Age: 88 Year
  Sex: Male
  Weight: 83.25 kg

DRUGS (1)
  1. FERAHEME [Suspect]
     Active Substance: FERUMOXYTOL NON-STOICHIOMETRIC MAGNETITE
     Indication: Iron deficiency
     Dosage: OTHER FREQUENCY : ONCE;?
     Route: 041
     Dates: start: 20220210, end: 20220210

REACTIONS (4)
  - Infusion related reaction [None]
  - Dyspnoea [None]
  - Flushing [None]
  - Anxiety [None]

NARRATIVE: CASE EVENT DATE: 20220210
